FAERS Safety Report 4550874-9 (Version None)
Quarter: 2004Q4

REPORT INFORMATION
  Report Type: 
  Country: None (occurrence: None)
  Receive Date: 20041217
  Receipt Date: 20040826
  Transmission Date: 20050328
  Serious: No
  Sender: FDA-Public Use
  Company Number: 2004-BP-06263BP

PATIENT
  Age: 70 Year
  Sex: Female

DRUGS (6)
  1. SPIRIVA [Suspect]
     Indication: CHRONIC OBSTRUCTIVE AIRWAYS DISEASE
     Dosage: 18 MCG (18 MCG), IH
     Route: 055
     Dates: start: 20040713
  2. ALBUTEROL [Suspect]
     Indication: CHRONIC OBSTRUCTIVE AIRWAYS DISEASE
     Dosage: NR (NR,BID), IH
     Route: 055
     Dates: start: 20040713
  3. ADVAIR (SERETIDE MITE) [Concomitant]
  4. GUAIFENEX (ENTEX /OLD FORM/) [Concomitant]
  5. LANOXIN [Concomitant]
  6. SINGULAIR [Concomitant]

REACTIONS (2)
  - FORMICATION [None]
  - PRURITUS GENERALISED [None]
